FAERS Safety Report 4764282-9 (Version None)
Quarter: 2005Q3

REPORT INFORMATION
  Report Type: 
  Country: None (occurrence: None)
  Receive Date: 20050909
  Receipt Date: 20050824
  Transmission Date: 20060218
  Serious: Yes (Other)
  Sender: FDA-Public Use
  Company Number: CO-BOEHRINGER INGELHEIM PHARMACEUTICALS, INC.-2005-BP-14984CL

PATIENT
  Sex: Female
  Weight: 55 kg

DRUGS (5)
  1. TIPRANAVIR / RITONAVIR CAPSULES, SOFTGELATIN [Suspect]
     Indication: HIV INFECTION
     Dosage: 1000/400 MG
     Route: 048
     Dates: start: 20040819, end: 20050717
  2. LAMIVUDINE [Suspect]
     Indication: HIV INFECTION
     Route: 048
     Dates: start: 20040819, end: 20050717
  3. TENOFOVIR [Suspect]
     Indication: HIV INFECTION
     Route: 048
     Dates: start: 20040819, end: 20050717
  4. 3TC [Concomitant]
     Indication: HIV INFECTION
     Route: 048
     Dates: start: 20040819, end: 20050717
  5. TDF (TENOFOVIR) [Concomitant]
     Indication: HIV INFECTION
     Route: 048
     Dates: start: 20040819, end: 20050717

REACTIONS (3)
  - ABORTION INDUCED [None]
  - DRUG EXPOSURE DURING PREGNANCY [None]
  - PREGNANCY [None]
